FAERS Safety Report 7281694-2 (Version None)
Quarter: 2011Q1

REPORT INFORMATION
  Report Type: 
  Country: None (occurrence: None)
  Receive Date: 20110208
  Receipt Date: 20110131
  Transmission Date: 20110831
  Serious: Yes (Other)
  Sender: FDA-Public Use
  Company Number: US-US-EMD SERONO, INC.-7003936

PATIENT
  Sex: Female

DRUGS (6)
  1. VERAPAMIL [Concomitant]
     Indication: HYPERTENSION
  2. VALIUM [Concomitant]
     Indication: SYSTEMIC LUPUS ERYTHEMATOSUS
  3. REBIF [Suspect]
     Indication: MULTIPLE SCLEROSIS
     Route: 058
     Dates: start: 20100118, end: 20100615
  4. VALIUM [Concomitant]
     Indication: DEPRESSION
  5. DIOVAN [Concomitant]
     Indication: HYPERTENSION
  6. HYDROXYCHLOROQUINE [Concomitant]
     Indication: SYSTEMIC LUPUS ERYTHEMATOSUS

REACTIONS (4)
  - INJECTION SITE ERYTHEMA [None]
  - INFLUENZA LIKE ILLNESS [None]
  - LUNG NEOPLASM [None]
  - INJECTION SITE MASS [None]
